FAERS Safety Report 4905964-5 (Version None)
Quarter: 2006Q1

REPORT INFORMATION
  Report Type: 
  Country: None (occurrence: None)
  Receive Date: 20060206
  Receipt Date: 20060124
  Transmission Date: 20060701
  Serious: Yes (Other)
  Sender: FDA-Public Use
  Company Number: 2006012769

PATIENT
  Sex: Male

DRUGS (2)
  1. MEDROL [Suspect]
     Indication: INJURY
  2. ANABOLIC STEROIDS (ANABOLIC STEROIDS) [Concomitant]

REACTIONS (6)
  - DRUG ABUSER [None]
  - HOMICIDE [None]
  - IMPRISONMENT [None]
  - INTENTIONAL DRUG MISUSE [None]
  - LEGAL PROBLEM [None]
  - PSYCHOTIC DISORDER [None]
